FAERS Safety Report 8371255-6 (Version None)
Quarter: 2012Q2

REPORT INFORMATION
  Report Type: 
  Country: None (occurrence: None)
  Receive Date: 20120518
  Receipt Date: 20120514
  Transmission Date: 20120825
  Serious: No
  Sender: FDA-Public Use
  Company Number: US-PFIZER INC-2012092165

PATIENT
  Sex: Male
  Weight: 130.15 kg

DRUGS (2)
  1. IBUPROFEN (ADVIL) [Suspect]
     Indication: PAIN
     Dosage: 200 MG, AS NEEDED
     Route: 048
  2. ASPIRIN [Concomitant]
     Dosage: 81 MG, UNK

REACTIONS (7)
  - HYPERTENSION [None]
  - NASOPHARYNGITIS [None]
  - ABDOMINAL DISCOMFORT [None]
  - ORAL DISCOMFORT [None]
  - GLOSSODYNIA [None]
  - GINGIVAL PAIN [None]
  - GOUT [None]
